FAERS Safety Report 17635819 (Version 1)
Quarter: 2020Q2

REPORT INFORMATION
  Report Type: Report from Study
  Country: None (occurrence: DE)
  Receive Date: 20200406
  Receipt Date: 20200406
  Transmission Date: 20200713
  Serious: Yes (Hospitalization)
  Sender: FDA-Public Use
  Company Number: DE-ABBVIE-19K-062-2910425-00

PATIENT
  Age: 52 Year
  Sex: Male
  Weight: 92 kg

DRUGS (3)
  1. HUMIRA [Suspect]
     Active Substance: ADALIMUMAB
     Indication: CROHN^S DISEASE
     Route: 058
     Dates: start: 20180912, end: 20190530
  2. ENSTILAR SPRAY FORM [Concomitant]
     Indication: PSORIASIS
     Route: 003
     Dates: start: 20190813
  3. HUMIRA [Suspect]
     Active Substance: ADALIMUMAB
     Indication: PSORIASIS

REACTIONS (2)
  - Bone cyst [Recovered/Resolved]
  - Joint surgery [Recovering/Resolving]

NARRATIVE: CASE EVENT DATE: 2019
